FAERS Safety Report 8723170 (Version 20)
Quarter: 2014Q2

REPORT INFORMATION
  Report Type: Report from Study
  Country: CA (occurrence: CA)
  Receive Date: 20120814
  Receipt Date: 20140605
  Transmission Date: 20141212
  Serious: Yes (Hospitalization, Other)
  Sender: FDA-Public Use
  Company Number: CA-ROCHE-1096544

PATIENT
  Age: 54 Year
  Sex: Male
  Weight: 114 kg

DRUGS (8)
  1. ACTEMRA [Suspect]
     Indication: RHEUMATOID ARTHRITIS
     Route: 042
     Dates: start: 20120119
  2. ACTEMRA [Suspect]
     Route: 042
     Dates: start: 20120314
  3. ACTEMRA [Suspect]
     Route: 042
     Dates: start: 20120604
  4. ZOPICLONE [Concomitant]
  5. PREDNISONE [Concomitant]
     Indication: RHEUMATOID ARTHRITIS
     Route: 065
  6. LEFLUNOMIDE [Concomitant]
  7. VITAMIN B12 [Concomitant]
  8. OMEGA 3-6-9 COMPLEX PRODUCT NOS [Concomitant]

REACTIONS (15)
  - Pneumonia [Recovered/Resolved]
  - Drug ineffective [Unknown]
  - Joint stiffness [Unknown]
  - Dyspnoea [Recovering/Resolving]
  - Hypoxia [Unknown]
  - Tachycardia [Not Recovered/Not Resolved]
  - Pain [Not Recovered/Not Resolved]
  - Cough [Unknown]
  - Blood pressure increased [Not Recovered/Not Resolved]
  - Heart rate increased [Not Recovered/Not Resolved]
  - Weight increased [Not Recovered/Not Resolved]
  - Lower respiratory tract infection [Not Recovered/Not Resolved]
  - Chest discomfort [Not Recovered/Not Resolved]
  - Musculoskeletal discomfort [Not Recovered/Not Resolved]
  - Upper respiratory tract infection [Unknown]
